FAERS Safety Report 18105798 (Version 4)
Quarter: 2020Q3

REPORT INFORMATION
  Report Type: Spontaneous
  Country: US (occurrence: US)
  Receive Date: 20200804
  Receipt Date: 20200915
  Transmission Date: 20201103
  Serious: No
  Sender: FDA-Public Use
  Company Number: US-BIOGEN-2020BI00904940

PATIENT
  Sex: Female

DRUGS (1)
  1. TECFIDERA [Suspect]
     Active Substance: DIMETHYL FUMARATE
     Indication: MULTIPLE SCLEROSIS
     Dosage: MAINTENANCE DOSE
     Route: 065
     Dates: start: 20200705

REACTIONS (6)
  - Alcohol intolerance [Unknown]
  - Feeling hot [Not Recovered/Not Resolved]
  - Hot flush [Unknown]
  - Skin exfoliation [Not Recovered/Not Resolved]
  - Paraesthesia [Unknown]
  - Memory impairment [Unknown]
